FAERS Safety Report 7425257-4 (Version None)
Quarter: 2011Q2

REPORT INFORMATION
  Report Type: 
  Country: None (occurrence: None)
  Receive Date: 20110420
  Receipt Date: 20100113
  Transmission Date: 20111010
  Serious: No
  Sender: FDA-Public Use
  Company Number: US-BAYER-201011290NA

PATIENT
  Sex: Female

DRUGS (3)
  1. YAZ [Suspect]
     Indication: CONTRACEPTION
     Dosage: UNK
     Dates: start: 20090101
  2. YAZ [Suspect]
     Indication: ACNE
  3. ORTHO TRI-CYCLEN [Concomitant]

REACTIONS (1)
  - AMENORRHOEA [None]
